FAERS Safety Report 9007436 (Version 1)
Quarter: 2013Q1

REPORT INFORMATION
  Report Type: Spontaneous
  Country: CA (occurrence: CA)
  Receive Date: 20130110
  Receipt Date: 20130110
  Transmission Date: 20140127
  Serious: Yes (Hospitalization, Other)
  Sender: FDA-Public Use
  Company Number: PHHY2013CA001911

PATIENT
  Age: 14 Year
  Sex: Female

DRUGS (1)
  1. VALPROIC ACID [Suspect]
     Indication: FEBRILE CONVULSION
     Dosage: 250 MG, TID
     Route: 048

REACTIONS (15)
  - Pancreatic necrosis [Unknown]
  - Pancreatitis acute [Unknown]
  - Abdominal pain [Unknown]
  - Vomiting [Unknown]
  - Ascites [Unknown]
  - Shock [Unknown]
  - Ileus [Unknown]
  - Pleural effusion [Unknown]
  - Diabetes mellitus [Unknown]
  - Skin plaque [Recovered/Resolved]
  - Papule [Recovered/Resolved]
  - Hyperglycaemia [Unknown]
  - Xanthoma [Unknown]
  - Polyuria [Unknown]
  - Hypertriglyceridaemia [Unknown]
